FAERS Safety Report 5124007-4 (Version None)
Quarter: 2006Q3

REPORT INFORMATION
  Report Type: 
  Country: None (occurrence: None)
  Receive Date: 20060811
  Receipt Date: 20060711
  Transmission Date: 20061208
  Serious: No
  Sender: FDA-Public Use
  Company Number: S06-USA-00296-01

PATIENT
  Age: 79 Year
  Sex: Male

DRUGS (6)
  1. NAMENDA [Suspect]
     Indication: DEMENTIA ALZHEIMER'S TYPE
     Dosage: 5 MG QD PO
     Route: 048
     Dates: start: 20060120, end: 20060101
  2. NAMENDA [Suspect]
     Indication: DEMENTIA ALZHEIMER'S TYPE
     Dates: start: 20060101, end: 20060320
  3. COUMADIN [Concomitant]
  4. ARICEPT [Concomitant]
  5. CELEBREX [Concomitant]
  6. FUROSEMIDE [Concomitant]

REACTIONS (4)
  - ANAL HAEMORRHAGE [None]
  - DIARRHOEA [None]
  - DRUG INEFFECTIVE [None]
  - FLATULENCE [None]
